FAERS Safety Report 11799559 (Version 2)
Quarter: 2015Q4

REPORT INFORMATION
  Report Type: Report from Study
  Country: NL (occurrence: NL)
  Receive Date: 20151203
  Receipt Date: 20151211
  Transmission Date: 20160305
  Serious: Yes (Death)
  Sender: FDA-Public Use
  Company Number: PHHY2015NL158072

PATIENT
  Age: 59 Year
  Sex: Female

DRUGS (2)
  1. ZOMETA [Suspect]
     Active Substance: ZOLEDRONIC ACID
     Indication: PRODUCT USED FOR UNKNOWN INDICATION
     Dosage: 4 MG/100ML, PER FOUR WEEKS
     Route: 042
  2. MORPHINE [Concomitant]
     Active Substance: MORPHINE
     Indication: PRODUCT USED FOR UNKNOWN INDICATION
     Route: 065

REACTIONS (4)
  - Ovarian cancer metastatic [Fatal]
  - Metastases to central nervous system [Fatal]
  - Disease progression [Fatal]
  - Metastases to bone [Fatal]

NARRATIVE: CASE EVENT DATE: 201503
